FAERS Safety Report 9026652 (Version 1)
Quarter: 2013Q1

REPORT INFORMATION
  Report Type: Spontaneous
  Country: US (occurrence: None)
  Receive Date: 20130114
  Receipt Date: 20130114
  Transmission Date: 20140127
  Serious: Yes (Other)
  Sender: FDA-Public Use
  Company Number: None

PATIENT
  Age: 76 Year
  Sex: Female
  Weight: 52.62 kg

DRUGS (2)
  1. ALPHAGAN P [Suspect]
     Dosage: 1 DROP EYE
     Dates: start: 20120912, end: 20121130
  2. DORZOLAMIDE HCL [Suspect]
     Dosage: 1 DROP EYE
     Dates: start: 20121114, end: 20121130

REACTIONS (3)
  - Fatigue [None]
  - Depression [None]
  - Insomnia [None]
